FAERS Safety Report 13867643 (Version 1)
Quarter: 2017Q3

REPORT INFORMATION
  Report Type: Report from Study
  Country: US (occurrence: US)
  Receive Date: 20170814
  Receipt Date: 20170814
  Transmission Date: 20171127
  Serious: No
  Sender: FDA-Public Use
  Company Number: US-ACADIA PHARMACEUTICALS INC.-ACA-2017-004570

PATIENT
  Age: 68 Year
  Sex: Male
  Weight: 88.44 kg

DRUGS (5)
  1. NUPLAZID [Suspect]
     Active Substance: PIMAVANSERIN TARTRATE
     Indication: DEMENTIA WITH LEWY BODIES
  2. NUPLAZID [Suspect]
     Active Substance: PIMAVANSERIN TARTRATE
     Indication: PARKINSON^S DISEASE PSYCHOSIS
     Dosage: 34 MG, QD
     Route: 048
     Dates: start: 201707
  3. SEROQUEL [Concomitant]
     Active Substance: QUETIAPINE FUMARATE
     Indication: RELAXATION THERAPY
     Dosage: 0.5 TABLET, BID
     Route: 065
  4. NUPLAZID [Suspect]
     Active Substance: PIMAVANSERIN TARTRATE
     Indication: HALLUCINATION
  5. NUPLAZID [Suspect]
     Active Substance: PIMAVANSERIN TARTRATE
     Indication: DELUSION

REACTIONS (11)
  - Crying [Not Recovered/Not Resolved]
  - Abnormal behaviour [Not Recovered/Not Resolved]
  - Social avoidant behaviour [Unknown]
  - Tachyphrenia [Unknown]
  - Drug ineffective [Unknown]
  - Hypersomnia [Unknown]
  - Restlessness [Unknown]
  - Off label use [Unknown]
  - Dermatillomania [Not Recovered/Not Resolved]
  - Aggression [Unknown]
  - Alexithymia [Unknown]

NARRATIVE: CASE EVENT DATE: 201707
